FAERS Safety Report 7344583-0 (Version None)
Quarter: 2011Q1

REPORT INFORMATION
  Report Type: 
  Country: None (occurrence: None)
  Receive Date: 20110310
  Receipt Date: 20110211
  Transmission Date: 20110831
  Serious: No
  Sender: FDA-Public Use
  Company Number: US-B.I. PHARMACEUTICALS,INC./RIDGEFIELD-2011-BP-00410BP

PATIENT
  Sex: Male

DRUGS (10)
  1. FINASTERIDE [Concomitant]
     Dosage: 5 MG
  2. PRAVASTATIN [Concomitant]
     Dosage: 20 MG
  3. LEVOTHYROXINE SODIUM [Concomitant]
     Dosage: 50 MG
  4. METHOCARBAMOL [Concomitant]
     Dosage: 500 MG
  5. TAMSULOSIN HCL [Concomitant]
     Dosage: 0.4 MG
  6. AMLODIPINE [Concomitant]
     Dosage: 10 MG
  7. ASPIRIN [Concomitant]
     Indication: PROPHYLAXIS
     Dosage: 81 MG
     Route: 048
  8. PRADAXA [Suspect]
     Indication: ATRIAL FIBRILLATION
     Dosage: 300 MG
     Route: 048
     Dates: start: 20101220
  9. DC [Concomitant]
     Dosage: 2000 U
  10. BENAZEPRIL HYDROCHLORIDE [Concomitant]
     Dosage: 40 MG

REACTIONS (3)
  - HAEMORRHAGE [None]
  - DIZZINESS [None]
  - HEADACHE [None]
